FAERS Safety Report 6966766-1 (Version None)
Quarter: 2010Q3

REPORT INFORMATION
  Report Type: 
  Country: None (occurrence: None)
  Receive Date: 20100906
  Receipt Date: 20100901
  Transmission Date: 20110219
  Serious: Yes (Hospitalization)
  Sender: FDA-Public Use
  Company Number: BN-BRISTOL-MYERS SQUIBB COMPANY-15261217

PATIENT
  Age: 53 Year
  Sex: Female

DRUGS (5)
  1. WARFARIN SODIUM [Suspect]
  2. ASPIRIN [Suspect]
  3. CARBIMAZOLE [Concomitant]
  4. OMEPRAZOLE [Concomitant]
  5. ATENOLOL [Concomitant]

REACTIONS (3)
  - INTERNATIONAL NORMALISED RATIO INCREASED [None]
  - INTESTINAL HAEMATOMA [None]
  - PANCREATITIS [None]
